FAERS Safety Report 18392566 (Version 1)
Quarter: 2020Q4

REPORT INFORMATION
  Report Type: Spontaneous
  Country: US (occurrence: US)
  Receive Date: 20201016
  Receipt Date: 20201016
  Transmission Date: 20210114
  Serious: No
  Sender: FDA-Public Use
  Company Number: None

PATIENT
  Age: 57 Year
  Sex: Female

DRUGS (2)
  1. GENERIC BUPRENORPHINE/NALOXONE FILMS [Suspect]
     Active Substance: BUPRENORPHINE HYDROCHLORIDE\NALOXONE HYDROCHLORIDE
     Indication: DRUG DEPENDENCE
     Route: 060
     Dates: start: 20200722
  2. GENERIC BUPRENORPHINE/NALOXONE TABLETS [Suspect]
     Active Substance: BUPRENORPHINE HYDROCHLORIDE\NALOXONE HYDROCHLORIDE
     Indication: DRUG DEPENDENCE
     Route: 060
     Dates: start: 20190926, end: 20191123

REACTIONS (2)
  - Headache [None]
  - Nausea [None]

NARRATIVE: CASE EVENT DATE: 20201014
